FAERS Safety Report 7970738-8 (Version None)
Quarter: 2011Q4

REPORT INFORMATION
  Report Type: 
  Country: None (occurrence: None)
  Receive Date: 20111212
  Receipt Date: 20111129
  Transmission Date: 20120403
  Serious: Yes (Other)
  Sender: FDA-Public Use
  Company Number: PHHY2011US12937

PATIENT
  Sex: Female
  Weight: 127 kg

DRUGS (1)
  1. EXJADE [Suspect]
     Indication: HAEMOCHROMATOSIS
     Dosage: 500 MG, QD
     Route: 048
     Dates: start: 20110208

REACTIONS (5)
  - HEADACHE [None]
  - STRESS [None]
  - LIVER DISORDER [None]
  - ANXIETY [None]
  - SERUM FERRITIN INCREASED [None]
